FAERS Safety Report 11792104 (Version 3)
Quarter: 2021Q1

REPORT INFORMATION
  Report Type: Spontaneous
  Country: CA (occurrence: CA)
  Receive Date: 20151201
  Receipt Date: 20210112
  Transmission Date: 20210419
  Serious: Yes (Other)
  Sender: FDA-Public Use
  Company Number: CA-TEVA-613004ACC

PATIENT
  Age: 73 Year
  Sex: Male
  Weight: 78 kg

DRUGS (3)
  1. ETOPOSIDE INJECTION, USP [Suspect]
     Active Substance: ETOPOSIDE
     Indication: PANCREATIC CARCINOMA
     Route: 065
  2. DEXAMETHASONE. [Concomitant]
     Active Substance: DEXAMETHASONE
  3. GRANISETRON [Concomitant]
     Active Substance: GRANISETRON

REACTIONS (5)
  - Oxygen saturation decreased [Unknown]
  - Product use in unapproved indication [Unknown]
  - Malaise [Unknown]
  - Back pain [Unknown]
  - Dysgeusia [Unknown]
